FAERS Safety Report 9416884 (Version 1)
Quarter: 2013Q3

REPORT INFORMATION
  Report Type: Spontaneous
  Country: CA (occurrence: CA)
  Receive Date: 20130724
  Receipt Date: 20130724
  Transmission Date: 20140515
  Serious: Yes (Hospitalization)
  Sender: FDA-Public Use
  Company Number: CA-ROCHE-1251118

PATIENT
  Age: 12 Year
  Sex: Male
  Weight: 53 kg

DRUGS (14)
  1. GRANISETRON [Suspect]
     Indication: PRODUCT USED FOR UNKNOWN INDICATION
     Dosage: THERAPY DURATION WAS 13.0 DAYS
     Route: 048
  2. OLANZAPINE [Suspect]
     Indication: PRODUCT USED FOR UNKNOWN INDICATION
     Dosage: THERAPY DURATONS WAS 9.0 DAYS
     Route: 048
  3. DOCUSATE SODIUM [Concomitant]
     Route: 065
  4. FENTANYL [Concomitant]
     Route: 042
  5. METHOTREXATE [Concomitant]
     Route: 042
  6. METHOTREXATE [Concomitant]
     Route: 037
  7. OMEPRAZOLE [Concomitant]
     Route: 048
  8. ONCASPAR [Concomitant]
     Route: 030
  9. PROPOFOL [Concomitant]
     Route: 042
  10. ROCURONIUM [Concomitant]
     Route: 042
  11. SUCCINYLCHOLINE CHLORIDE [Concomitant]
     Route: 042
  12. SUCRALFATE [Concomitant]
     Route: 048
  13. SUPRANE [Concomitant]
     Route: 042
  14. VINCRISTINE SULFATE [Concomitant]
     Route: 042

REACTIONS (11)
  - Abasia [Recovered/Resolved]
  - Aphasia [Recovered/Resolved]
  - Blood pressure fluctuation [Recovered/Resolved]
  - Condition aggravated [Recovered/Resolved]
  - Mental status changes [Recovered/Resolved]
  - Myalgia [Recovered/Resolved]
  - Myoclonus [Recovered/Resolved]
  - Neuroleptic malignant syndrome [Recovered/Resolved]
  - Pyrexia [Recovered/Resolved]
  - Serotonin syndrome [Recovered/Resolved]
  - Somnolence [Recovered/Resolved]
